FAERS Safety Report 12999797 (Version 1)
Quarter: 2016Q4

REPORT INFORMATION
  Report Type: Report from Study
  Country: US (occurrence: US)
  Receive Date: 20161205
  Receipt Date: 20161205
  Transmission Date: 20170207
  Serious: Yes (Hospitalization)
  Sender: FDA-Public Use
  Company Number: US-ACTELION-A-US2016-146238

PATIENT
  Age: 78 Year
  Sex: Female

DRUGS (5)
  1. TRACLEER [Suspect]
     Active Substance: BOSENTAN
     Indication: PULMONARY HYPERTENSION
     Dosage: 125 MG, BID
     Route: 048
     Dates: start: 20060719
  2. DILTIAZEM. [Concomitant]
     Active Substance: DILTIAZEM
  3. COUMADIN [Concomitant]
     Active Substance: WARFARIN SODIUM
  4. PREDNISONE. [Concomitant]
     Active Substance: PREDNISONE
     Indication: HAEMATOCHEZIA
  5. LASIX [Concomitant]
     Active Substance: FUROSEMIDE
     Indication: HAEMATOCHEZIA

REACTIONS (1)
  - Haematochezia [Unknown]
